FAERS Safety Report 10445358 (Version 1)
Quarter: 2014Q3

REPORT INFORMATION
  Report Type: Spontaneous
  Country: US (occurrence: US)
  Receive Date: 20140910
  Receipt Date: 20140910
  Transmission Date: 20150326
  Serious: Yes (Hospitalization)
  Sender: FDA-Public Use
  Company Number: US-TAKEDA-2014TUS008363

PATIENT
  Age: 24 Year
  Sex: Male
  Weight: 58.96 kg

DRUGS (2)
  1. AUGMENTIN [Concomitant]
     Active Substance: AMOXICILLIN\CLAVULANATE POTASSIUM
     Indication: STOMA SITE INFECTION
     Dosage: UNK, BID
     Route: 048
     Dates: start: 20140822
  2. ENTYVIO [Suspect]
     Active Substance: VEDOLIZUMAB
     Indication: CROHN^S DISEASE
     Dosage: UNK, 1 DOSE
     Route: 042
     Dates: start: 20140829, end: 20140829

REACTIONS (3)
  - Nausea [Unknown]
  - Stoma site abscess [Recovering/Resolving]
  - Pyrexia [Unknown]

NARRATIVE: CASE EVENT DATE: 20140831
